FAERS Safety Report 14956006 (Version 6)
Quarter: 2020Q1

REPORT INFORMATION
  Report Type: Spontaneous
  Country: CA (occurrence: CA)
  Receive Date: 20180531
  Receipt Date: 20200305
  Transmission Date: 20200409
  Serious: Yes (Life-Threatening, Hospitalization, Disabling, Other)
  Sender: FDA-Public Use
  Company Number: CA-SAMSUNG BIOEPIS-SB-2017-04909

PATIENT
  Age: 12 Year
  Sex: Female
  Weight: 64 kg

DRUGS (112)
  1. ETANERCEPT [Suspect]
     Active Substance: ETANERCEPT
     Indication: RHEUMATOID ARTHRITIS
     Route: 058
  2. INFLIXIMAB [Suspect]
     Active Substance: INFLIXIMAB
     Indication: JUVENILE IDIOPATHIC ARTHRITIS
     Route: 042
  3. ADALIMUMAB [Suspect]
     Active Substance: ADALIMUMAB
     Indication: RHEUMATOID ARTHRITIS
     Dosage: UNKNOWN
     Route: 058
  4. ANAKINRA [Suspect]
     Active Substance: ANAKINRA
     Indication: JUVENILE IDIOPATHIC ARTHRITIS
     Route: 058
  5. ANAKINRA [Suspect]
     Active Substance: ANAKINRA
     Dosage: UNKNOWN
     Route: 058
  6. METHOTREXATE. [Suspect]
     Active Substance: METHOTREXATE
     Route: 058
  7. METHOTREXATE. [Suspect]
     Active Substance: METHOTREXATE
     Route: 058
  8. METHOTREXATE. [Suspect]
     Active Substance: METHOTREXATE
     Dosage: UNKNOWN
     Route: 065
  9. METHOTREXATE. [Suspect]
     Active Substance: METHOTREXATE
     Route: 058
  10. APO-NAPROXEN [Suspect]
     Active Substance: NAPROXEN
     Dosage: UNKNOWN
     Route: 065
  11. APO-PREDNISONE [Suspect]
     Active Substance: PREDNISONE
     Indication: RHEUMATOID ARTHRITIS
     Route: 048
  12. TOCILIZUMAB. [Suspect]
     Active Substance: TOCILIZUMAB
     Route: 042
  13. ORENCIA [Suspect]
     Active Substance: ABATACEPT
     Indication: RHEUMATOID ARTHRITIS
     Route: 041
  14. ORENCIA [Suspect]
     Active Substance: ABATACEPT
     Indication: PRODUCT USED FOR UNKNOWN INDICATION
     Route: 042
  15. PREDNISONE. [Suspect]
     Active Substance: PREDNISONE
     Indication: PRODUCT USED FOR UNKNOWN INDICATION
     Route: 048
  16. TRIAMCINOLONE ACETONIDE. [Suspect]
     Active Substance: TRIAMCINOLONE ACETONIDE
     Indication: SEASONAL ALLERGY
     Dosage: UNKNOWN
     Route: 065
  17. ACTEMRA [Suspect]
     Active Substance: TOCILIZUMAB
     Indication: RHEUMATOID ARTHRITIS
     Route: 042
  18. ACTEMRA [Suspect]
     Active Substance: TOCILIZUMAB
     Indication: STILL^S DISEASE
     Route: 042
  19. ENBREL [Suspect]
     Active Substance: ETANERCEPT
     Route: 058
  20. HUMIRA [Suspect]
     Active Substance: ADALIMUMAB
     Indication: RHEUMATOID ARTHRITIS
     Dosage: UNKNOWN
     Route: 058
  21. HUMIRA [Suspect]
     Active Substance: ADALIMUMAB
     Dosage: UNKNOWN. SOLUTION
     Route: 058
  22. TRIAMCINOLONE [Suspect]
     Active Substance: TRIAMCINOLONE
     Indication: RHEUMATOID ARTHRITIS
     Dosage: UNKNOWN
     Route: 065
  23. ETANERCEPT [Suspect]
     Active Substance: ETANERCEPT
     Route: 058
  24. INFLIXIMAB [Suspect]
     Active Substance: INFLIXIMAB
     Route: 065
  25. ANAKINRA [Suspect]
     Active Substance: ANAKINRA
     Dosage: UNKNOWN
     Route: 065
  26. METHOTREXATE. [Suspect]
     Active Substance: METHOTREXATE
     Dosage: UNKNOWN
     Route: 058
  27. APO-PREDNISONE [Suspect]
     Active Substance: PREDNISONE
     Indication: PRODUCT USED FOR UNKNOWN INDICATION
     Route: 048
  28. APO-SULFASALAZINE [Suspect]
     Active Substance: SULFASALAZINE
     Indication: RHEUMATOID ARTHRITIS
     Route: 048
  29. HYDROXYCHLOROQUINE [Suspect]
     Active Substance: HYDROXYCHLOROQUINE
     Indication: JUVENILE IDIOPATHIC ARTHRITIS
     Route: 048
  30. ACTEMRA [Suspect]
     Active Substance: TOCILIZUMAB
     Indication: JUVENILE IDIOPATHIC ARTHRITIS
     Route: 042
  31. GAMMAGARD LIQUID [Suspect]
     Active Substance: HUMAN IMMUNOGLOBULIN G
     Indication: JUVENILE IDIOPATHIC ARTHRITIS
     Route: 042
  32. HYDROXYCHLOROQUINE SULFATE. [Suspect]
     Active Substance: HYDROXYCHLOROQUINE SULFATE
     Indication: JUVENILE IDIOPATHIC ARTHRITIS
     Dosage: UNKNOWN
     Route: 048
  33. ETANERCEPT [Suspect]
     Active Substance: ETANERCEPT
     Route: 058
  34. METHOTREXATE. [Suspect]
     Active Substance: METHOTREXATE
     Indication: PRODUCT USED FOR UNKNOWN INDICATION
     Dosage: UNKNOWN
     Route: 065
  35. HYDROXYCHLOROQUINE [Suspect]
     Active Substance: HYDROXYCHLOROQUINE
     Indication: RHEUMATOID ARTHRITIS
     Route: 048
  36. ORENCIA [Suspect]
     Active Substance: ABATACEPT
     Route: 042
  37. ORENCIA [Suspect]
     Active Substance: ABATACEPT
     Route: 041
  38. PREDNISONE. [Suspect]
     Active Substance: PREDNISONE
     Indication: RHEUMATOID ARTHRITIS
     Route: 065
  39. PREDNISONE. [Suspect]
     Active Substance: PREDNISONE
     Dosage: UNKNOWN
     Route: 065
  40. ENBREL [Suspect]
     Active Substance: ETANERCEPT
     Indication: JUVENILE IDIOPATHIC ARTHRITIS
     Route: 058
  41. HUMIRA [Suspect]
     Active Substance: ADALIMUMAB
     Indication: JUVENILE IDIOPATHIC ARTHRITIS
     Dosage: UNKNOWN
     Route: 058
  42. KINERET [Suspect]
     Active Substance: ANAKINRA
     Indication: RHEUMATOID ARTHRITIS
     Dosage: PER SYRINGE SINGLE-USE, PRESERVATIVE-FREE PRE-FILLED SYRINGES, SOLUTION SUBCUTANEOUS
     Route: 058
  43. INFLIXIMAB [Suspect]
     Active Substance: INFLIXIMAB
     Route: 065
  44. INFLIXIMAB [Suspect]
     Active Substance: INFLIXIMAB
     Route: 042
  45. ADALIMUMAB [Suspect]
     Active Substance: ADALIMUMAB
     Indication: JUVENILE IDIOPATHIC ARTHRITIS
     Dosage: UNKNOWN
     Route: 065
  46. APO-HYDROXYQUINE [Suspect]
     Active Substance: HYDROXYCHLOROQUINE SULFATE
     Indication: RHEUMATOID ARTHRITIS
     Dosage: UNKNOWN
     Route: 048
  47. METHOTREXATE. [Suspect]
     Active Substance: METHOTREXATE
     Indication: RHEUMATOID ARTHRITIS
     Route: 065
  48. ORENCIA [Suspect]
     Active Substance: ABATACEPT
     Route: 042
  49. SULFASALAZINE. [Suspect]
     Active Substance: SULFASALAZINE
     Indication: JUVENILE IDIOPATHIC ARTHRITIS
  50. ENBREL [Suspect]
     Active Substance: ETANERCEPT
     Route: 058
  51. GAMMAGARD LIQUID [Suspect]
     Active Substance: HUMAN IMMUNOGLOBULIN G
     Indication: PRODUCT USED FOR UNKNOWN INDICATION
     Route: 042
  52. HYDROXYCHLOROQUINE SULFATE. [Suspect]
     Active Substance: HYDROXYCHLOROQUINE SULFATE
     Indication: RHEUMATOID ARTHRITIS
     Route: 048
  53. INFLIXIMAB [Suspect]
     Active Substance: INFLIXIMAB
     Indication: PRODUCT USED FOR UNKNOWN INDICATION
     Route: 042
  54. INFLIXIMAB [Suspect]
     Active Substance: INFLIXIMAB
     Dosage: UNKNOWN
     Route: 065
  55. INFLIXIMAB [Suspect]
     Active Substance: INFLIXIMAB
     Route: 042
  56. METHOTREXATE. [Suspect]
     Active Substance: METHOTREXATE
     Route: 058
  57. APO-NAPROXEN [Suspect]
     Active Substance: NAPROXEN
     Indication: JUVENILE IDIOPATHIC ARTHRITIS
     Dosage: TABLET (ENTERIC COATED)
     Route: 048
  58. APO-NAPROXEN [Suspect]
     Active Substance: NAPROXEN
     Route: 048
  59. APO-PREDNISONE [Suspect]
     Active Substance: PREDNISONE
     Indication: JUVENILE IDIOPATHIC ARTHRITIS
     Route: 048
  60. APO-TRIAMCINOLONE AQ [Suspect]
     Active Substance: TRIAMCINOLONE ACETONIDE
     Dosage: SPRAY METERED DOSE
     Route: 065
  61. TOCILIZUMAB. [Suspect]
     Active Substance: TOCILIZUMAB
     Indication: JUVENILE IDIOPATHIC ARTHRITIS
     Route: 042
  62. ORENCIA [Suspect]
     Active Substance: ABATACEPT
     Dosage: UNKNOWN
     Route: 065
  63. PREDNISONE. [Suspect]
     Active Substance: PREDNISONE
     Route: 048
  64. SULFASALAZINE. [Suspect]
     Active Substance: SULFASALAZINE
     Indication: RHEUMATOID ARTHRITIS
     Route: 048
  65. TRIAMCINOLONE ACETONIDE. [Suspect]
     Active Substance: TRIAMCINOLONE ACETONIDE
     Indication: JUVENILE IDIOPATHIC ARTHRITIS
     Dosage: UNKNOWN
     Route: 065
  66. ACTEMRA [Suspect]
     Active Substance: TOCILIZUMAB
     Route: 042
  67. HYDROXYCHLOROQUINE SULFATE. [Suspect]
     Active Substance: HYDROXYCHLOROQUINE SULFATE
     Indication: PRODUCT USED FOR UNKNOWN INDICATION
     Route: 048
  68. INFLIXIMAB [Suspect]
     Active Substance: INFLIXIMAB
     Dosage: UNKNOWN
     Route: 042
  69. ADALIMUMAB [Suspect]
     Active Substance: ADALIMUMAB
     Indication: PRODUCT USED FOR UNKNOWN INDICATION
  70. ABATACEPT [Suspect]
     Active Substance: ABATACEPT
     Indication: RHEUMATOID ARTHRITIS
     Route: 041
  71. ANAKINRA [Suspect]
     Active Substance: ANAKINRA
     Indication: RHEUMATOID ARTHRITIS
     Route: 058
  72. METHOTREXATE. [Suspect]
     Active Substance: METHOTREXATE
     Indication: JUVENILE IDIOPATHIC ARTHRITIS
     Route: 058
  73. METHOTREXATE. [Suspect]
     Active Substance: METHOTREXATE
     Dosage: UNKNOWN
     Route: 058
  74. APO-NAPROXEN [Suspect]
     Active Substance: NAPROXEN
     Indication: RHEUMATOID ARTHRITIS
     Dosage: UNKNOWN
     Route: 065
  75. APO-NAPROXEN [Suspect]
     Active Substance: NAPROXEN
     Indication: PRODUCT USED FOR UNKNOWN INDICATION
     Dosage: TABLET (ENTERIC COATED)
     Route: 048
  76. APO-NAPROXEN [Suspect]
     Active Substance: NAPROXEN
     Route: 048
  77. APO-TRIAMCINOLONE AQ [Suspect]
     Active Substance: TRIAMCINOLONE ACETONIDE
     Indication: RHEUMATOID ARTHRITIS
     Dosage: UNKNOWN
     Route: 065
  78. ORENCIA [Suspect]
     Active Substance: ABATACEPT
     Dosage: UNKNOWN
     Route: 065
  79. ORENCIA [Suspect]
     Active Substance: ABATACEPT
     Route: 065
  80. PREDNISONE. [Suspect]
     Active Substance: PREDNISONE
     Indication: JUVENILE IDIOPATHIC ARTHRITIS
     Route: 048
  81. PREDNISONE. [Suspect]
     Active Substance: PREDNISONE
     Route: 048
  82. ACTEMRA [Suspect]
     Active Substance: TOCILIZUMAB
     Indication: PRODUCT USED FOR UNKNOWN INDICATION
     Route: 042
  83. ACTEMRA [Suspect]
     Active Substance: TOCILIZUMAB
     Dosage: UNKNOWN
     Route: 065
  84. TRIAMCINOLONE HEXACETONIDE [Suspect]
     Active Substance: TRIAMCINOLONE HEXACETONIDE
     Indication: RHEUMATOID ARTHRITIS
     Dosage: UNKNOWN
     Route: 065
  85. TRIAMCINOLONE HEXACETONIDE [Suspect]
     Active Substance: TRIAMCINOLONE HEXACETONIDE
     Indication: JUVENILE IDIOPATHIC ARTHRITIS
  86. FOLIC ACID. [Concomitant]
     Active Substance: FOLIC ACID
     Indication: PRODUCT USED FOR UNKNOWN INDICATION
     Dosage: UNKNOWN
     Route: 065
  87. ETANERCEPT [Suspect]
     Active Substance: ETANERCEPT
     Indication: PRODUCT USED FOR UNKNOWN INDICATION
     Route: 058
  88. ETANERCEPT [Suspect]
     Active Substance: ETANERCEPT
     Route: 058
  89. INFLIXIMAB [Suspect]
     Active Substance: INFLIXIMAB
     Indication: RHEUMATOID ARTHRITIS
     Route: 042
  90. INFLIXIMAB [Suspect]
     Active Substance: INFLIXIMAB
     Dosage: UNKNOWN
     Route: 042
  91. INFLIXIMAB [Suspect]
     Active Substance: INFLIXIMAB
     Route: 042
  92. ORENCIA [Suspect]
     Active Substance: ABATACEPT
     Indication: JUVENILE IDIOPATHIC ARTHRITIS
     Dosage: INHALATION
     Route: 065
  93. ORENCIA [Suspect]
     Active Substance: ABATACEPT
     Route: 042
  94. TRIAMCINOLONE ACETONIDE. [Suspect]
     Active Substance: TRIAMCINOLONE ACETONIDE
     Indication: RHEUMATOID ARTHRITIS
     Dosage: UNKNOWN
     Route: 014
  95. ENBREL [Suspect]
     Active Substance: ETANERCEPT
     Route: 058
  96. INFLIXIMAB [Suspect]
     Active Substance: INFLIXIMAB
     Dosage: UNKNOWN
     Route: 042
  97. INFLIXIMAB [Suspect]
     Active Substance: INFLIXIMAB
     Route: 042
  98. INFLIXIMAB [Suspect]
     Active Substance: INFLIXIMAB
     Dosage: UNKNOWN
     Route: 042
  99. ANAKINRA [Suspect]
     Active Substance: ANAKINRA
     Indication: PRODUCT USED FOR UNKNOWN INDICATION
     Route: 065
  100. METHOTREXATE. [Suspect]
     Active Substance: METHOTREXATE
     Dosage: UNKNOWN
     Route: 065
  101. TOCILIZUMAB. [Suspect]
     Active Substance: TOCILIZUMAB
     Indication: RHEUMATOID ARTHRITIS
     Route: 042
  102. NAPROXEN. [Suspect]
     Active Substance: NAPROXEN
     Indication: RHEUMATOID ARTHRITIS
     Dosage: UNKNOWN
     Route: 065
  103. NAPROXEN. [Suspect]
     Active Substance: NAPROXEN
     Indication: JUVENILE IDIOPATHIC ARTHRITIS
  104. PREDNISONE. [Suspect]
     Active Substance: PREDNISONE
     Route: 048
  105. TRIAMCINOLONE ACETONIDE. [Suspect]
     Active Substance: TRIAMCINOLONE ACETONIDE
     Indication: RHINITIS PERENNIAL
     Dosage: UNKNOWN
     Route: 014
  106. ENBREL [Suspect]
     Active Substance: ETANERCEPT
     Indication: RHEUMATOID ARTHRITIS
     Route: 058
  107. ENBREL [Suspect]
     Active Substance: ETANERCEPT
     Indication: PRODUCT USED FOR UNKNOWN INDICATION
     Route: 058
  108. HUMIRA [Suspect]
     Active Substance: ADALIMUMAB
     Dosage: UNKNOWN
     Route: 065
  109. GAMMAGARD LIQUID [Suspect]
     Active Substance: HUMAN IMMUNOGLOBULIN G
     Indication: RHEUMATOID ARTHRITIS
     Route: 042
  110. GAMMAGARD LIQUID [Suspect]
     Active Substance: HUMAN IMMUNOGLOBULIN G
     Dosage: UNKNOWN
     Route: 042
  111. KINERET [Suspect]
     Active Substance: ANAKINRA
     Indication: JUVENILE IDIOPATHIC ARTHRITIS
  112. TRIAMCINOLONE [Suspect]
     Active Substance: TRIAMCINOLONE
     Indication: JUVENILE IDIOPATHIC ARTHRITIS
     Route: 058

REACTIONS (48)
  - Bone density decreased [Not Recovered/Not Resolved]
  - Condition aggravated [Not Recovered/Not Resolved]
  - Diarrhoea [Not Recovered/Not Resolved]
  - Dizziness [Not Recovered/Not Resolved]
  - Joint destruction [Not Recovered/Not Resolved]
  - Rheumatoid arthritis [Not Recovered/Not Resolved]
  - Septic shock [Not Recovered/Not Resolved]
  - Synovitis [Not Recovered/Not Resolved]
  - Hypokalaemia [Not Recovered/Not Resolved]
  - Juvenile idiopathic arthritis [Not Recovered/Not Resolved]
  - Pyrexia [Not Recovered/Not Resolved]
  - Adrenal insufficiency [Not Recovered/Not Resolved]
  - Body height below normal [Not Recovered/Not Resolved]
  - Hypocalcaemia [Not Recovered/Not Resolved]
  - Liver function test abnormal [Not Recovered/Not Resolved]
  - Psoriasis [Not Recovered/Not Resolved]
  - Nausea [Not Recovered/Not Resolved]
  - Obesity [Not Recovered/Not Resolved]
  - Arthritis [Not Recovered/Not Resolved]
  - Drug intolerance [Not Recovered/Not Resolved]
  - Gastroenteritis viral [Not Recovered/Not Resolved]
  - Joint effusion [Not Recovered/Not Resolved]
  - Off label use [Not Recovered/Not Resolved]
  - Human anti-human antibody test [Not Recovered/Not Resolved]
  - Therapeutic product effect decreased [Not Recovered/Not Resolved]
  - Human antichimeric antibody positive [Not Recovered/Not Resolved]
  - C-reactive protein increased [Not Recovered/Not Resolved]
  - Impaired quality of life [Not Recovered/Not Resolved]
  - Polyarthritis [Not Recovered/Not Resolved]
  - Wheelchair user [Not Recovered/Not Resolved]
  - Antibody test positive [Not Recovered/Not Resolved]
  - Arthropathy [Not Recovered/Not Resolved]
  - Vomiting [Not Recovered/Not Resolved]
  - Hypotension [Not Recovered/Not Resolved]
  - Drug specific antibody present [Not Recovered/Not Resolved]
  - Contraindicated product administered [Not Recovered/Not Resolved]
  - Product use issue [Not Recovered/Not Resolved]
  - Loss of consciousness [Not Recovered/Not Resolved]
  - Mobility decreased [Not Recovered/Not Resolved]
  - Red blood cell sedimentation rate increased [Not Recovered/Not Resolved]
  - Prescribed underdose [Not Recovered/Not Resolved]
  - Joint injury [Not Recovered/Not Resolved]
  - Therapy non-responder [Not Recovered/Not Resolved]
  - Drug specific antibody [Not Recovered/Not Resolved]
  - Drug ineffective [Not Recovered/Not Resolved]
  - Immunodeficiency [Not Recovered/Not Resolved]
  - Loss of personal independence in daily activities [Not Recovered/Not Resolved]
  - Pleural effusion [Not Recovered/Not Resolved]
